FAERS Safety Report 6592208-4 (Version None)
Quarter: 2010Q1

REPORT INFORMATION
  Report Type: 
  Country: None (occurrence: None)
  Receive Date: 20100221
  Receipt Date: 20091112
  Transmission Date: 20100710
  Serious: No
  Sender: FDA-Public Use
  Company Number: US-ALLERGAN-0912715US

PATIENT
  Age: 50 Year
  Sex: Female

DRUGS (11)
  1. BOTOX [Suspect]
     Indication: MIGRAINE
     Dosage: 250 UNITS, SINGLE
     Route: 030
     Dates: start: 20090829, end: 20090829
  2. KEPPRA [Concomitant]
  3. LAMICTAL [Concomitant]
  4. CHANTIX [Concomitant]
  5. VICODIN ES [Concomitant]
  6. SKELAXIN [Concomitant]
  7. ATIVAN [Concomitant]
  8. BACLOFEN [Concomitant]
  9. PAXIL [Concomitant]
  10. ALBUTEROL [Concomitant]
  11. AZMACORT [Concomitant]

REACTIONS (3)
  - MUSCLE SPASMS [None]
  - MUSCULAR WEAKNESS [None]
  - NECK PAIN [None]
